FAERS Safety Report 21115323 (Version 1)
Quarter: 2022Q3

REPORT INFORMATION
  Report Type: Spontaneous
  Country: US (occurrence: US)
  Receive Date: 20220721
  Receipt Date: 20220721
  Transmission Date: 20221027
  Serious: No
  Sender: FDA-Public Use
  Company Number: US-PERRIGO-22US004320

PATIENT
  Age: 37 Year
  Sex: Male
  Weight: 104.31 kg

DRUGS (1)
  1. MINOXIDIL [Suspect]
     Active Substance: MINOXIDIL
     Indication: Insomnia
     Dosage: 1 ML, BID
     Route: 061
     Dates: start: 20200121, end: 20210726

REACTIONS (5)
  - Headache [Recovered/Resolved]
  - Application site exfoliation [Recovered/Resolved]
  - Dizziness [Recovered/Resolved]
  - Application site irritation [Recovered/Resolved]
  - Drug ineffective [Unknown]

NARRATIVE: CASE EVENT DATE: 20200121
